FAERS Safety Report 7684003-X (Version None)
Quarter: 2011Q3

REPORT INFORMATION
  Report Type: 
  Country: None (occurrence: None)
  Receive Date: 20110815
  Receipt Date: 20110809
  Transmission Date: 20111222
  Serious: Yes (Other)
  Sender: FDA-Public Use
  Company Number: JO-PFIZER INC-2011153721

PATIENT
  Age: 31 Year
  Sex: Female

DRUGS (3)
  1. PRISTIQ [Suspect]
     Indication: SKIN EXFOLIATION
     Dosage: 50 MG, UNK
     Route: 048
  2. VITAMIN D [Concomitant]
     Indication: SUPPLEMENTATION THERAPY
     Dosage: 5000 IU, ALTERNATE DAY
     Route: 048
     Dates: end: 20110709
  3. PRISTIQ [Suspect]
     Indication: SKIN DISORDER

REACTIONS (2)
  - UTERINE LEIOMYOMA [None]
  - VAGINAL HAEMORRHAGE [None]
